FAERS Safety Report 21841898 (Version 3)
Quarter: 2024Q1

REPORT INFORMATION
  Report Type: Report from Study
  Country: US (occurrence: US)
  Receive Date: 20230110
  Receipt Date: 20240113
  Transmission Date: 20240410
  Serious: Yes (Death)
  Sender: FDA-Public Use
  Company Number: US-JNJFOC-20230114425

PATIENT
  Age: 10 Day
  Sex: Male

DRUGS (2)
  1. ACETAMINOPHEN [Suspect]
     Active Substance: ACETAMINOPHEN
     Indication: Product used for unknown indication
     Dosage: 320MG OVER ABOUT 48 HOURS
     Route: 065
     Dates: start: 2021
  2. AMIODARONE [Suspect]
     Active Substance: AMIODARONE
     Indication: Product used for unknown indication
     Route: 065
     Dates: start: 2021

REACTIONS (4)
  - Toxicity to various agents [Fatal]
  - Adverse drug reaction [Fatal]
  - Hypoplastic left heart syndrome [Fatal]
  - Haemorrhage [Fatal]

NARRATIVE: CASE EVENT DATE: 20210101
